FAERS Safety Report 24543834 (Version 1)
Quarter: 2024Q4

REPORT INFORMATION
  Report Type: Spontaneous
  Country: DE (occurrence: DE)
  Receive Date: 20241024
  Receipt Date: 20241024
  Transmission Date: 20250115
  Serious: Yes (Other)
  Sender: AUROBINDO
  Company Number: DE-002147023-NVSC2020DE126405

PATIENT
  Sex: Female
  Weight: 87 kg

DRUGS (3)
  1. FULVESTRANT [Suspect]
     Active Substance: FULVESTRANT
     Indication: Breast cancer metastatic
     Dosage: 250 MILLIGRAM, ONCE A DAY (250 MG, QD)
     Route: 065
     Dates: start: 20191119
  2. FULVESTRANT [Suspect]
     Active Substance: FULVESTRANT
     Dosage: 600 MILLIGRAM, ONCE A DAY (600 MG, QD (THE RECOMMENDED INTAKE OF 21 DAYS WITH 7 DAYS PAUSE WAS NOT F
     Route: 065
     Dates: start: 20191119
  3. KISQALI [Suspect]
     Active Substance: RIBOCICLIB
     Indication: Breast cancer metastatic
     Dosage: 600 MILLIGRAM, ONCE A DAY (600 MG, QD (THE RECOMMENDED INTAKE OF 21 DAYS WITH 7 DAYS PAUSE WAS NOT F
     Route: 048
     Dates: start: 20191119

REACTIONS (4)
  - Leukopenia [Recovered/Resolved]
  - Depression [Not Recovered/Not Resolved]
  - Anxiety [Not Recovered/Not Resolved]
  - Off label use [Unknown]

NARRATIVE: CASE EVENT DATE: 20191119
